FAERS Safety Report 8286057-9 (Version None)
Quarter: 2012Q2

REPORT INFORMATION
  Report Type: 
  Country: None (occurrence: None)
  Receive Date: 20120416
  Receipt Date: 20120403
  Transmission Date: 20120825
  Serious: No
  Sender: FDA-Public Use
  Company Number: US-BIOGENIDEC-2011BI003554

PATIENT
  Age: 46 Year
  Sex: Female

DRUGS (3)
  1. PERCOCET [Concomitant]
     Indication: BACK PAIN
  2. TYSABRI [Suspect]
     Indication: MULTIPLE SCLEROSIS
     Route: 042
     Dates: start: 20090507
  3. FLU SHOT [Concomitant]

REACTIONS (4)
  - ALLERGY TO VACCINE [None]
  - MEMORY IMPAIRMENT [None]
  - EAR INFECTION [None]
  - INFLUENZA LIKE ILLNESS [None]
